FAERS Safety Report 9997863 (Version 1)
Quarter: 2014Q1

REPORT INFORMATION
  Report Type: Spontaneous
  Country: EC (occurrence: EC)
  Receive Date: 20140311
  Receipt Date: 20140311
  Transmission Date: 20141002
  Serious: Yes (Other)
  Sender: FDA-Public Use
  Company Number: EC-PFIZER INC-2014066939

PATIENT
  Age: 65 Year
  Sex: Male

DRUGS (1)
  1. CARDURA [Suspect]
     Dosage: 2 MG, 2X/DAY
     Route: 048
     Dates: start: 20130810, end: 20131107

REACTIONS (2)
  - Cardiac disorder [Unknown]
  - Malaise [Unknown]
